FAERS Safety Report 5507439-1 (Version None)
Quarter: 2007Q4

REPORT INFORMATION
  Report Type: 
  Country: None (occurrence: None)
  Receive Date: 20071106
  Receipt Date: 20071030
  Transmission Date: 20080405
  Serious: Yes (Hospitalization)
  Sender: FDA-Public Use
  Company Number: US-ASTRAZENECA-2007UW25239

PATIENT
  Age: 80 Year
  Sex: Female
  Weight: 49.9 kg

DRUGS (4)
  1. PRILOSEC [Suspect]
  2. NEURONTIN [Concomitant]
  3. RANITIDINE [Concomitant]
  4. ZOLOFT [Concomitant]

REACTIONS (3)
  - ASTHENIA [None]
  - CONTUSION [None]
  - GASTRITIS HAEMORRHAGIC [None]
